FAERS Safety Report 9853998 (Version 1)
Quarter: 2014Q1

REPORT INFORMATION
  Report Type: Spontaneous
  Country: US (occurrence: US)
  Receive Date: 20140129
  Receipt Date: 20140129
  Transmission Date: 20141002
  Serious: No
  Sender: FDA-Public Use
  Company Number: US-BAXTER-2014BAX003705

PATIENT
  Sex: 0
  Weight: 79.8 kg

DRUGS (1)
  1. DOPAMINE, HYDROCHLORIDE; GLUCOSE, MONOHYDRATE_DOPAMINE, HYDROCHLORIDE [Suspect]
     Indication: PRODUCT USED FOR UNKNOWN INDICATION
     Route: 065
     Dates: start: 20131219

REACTIONS (6)
  - Blood pressure increased [Recovered/Resolved]
  - Device malfunction [Recovered/Resolved]
  - Incorrect drug administration rate [Recovered/Resolved]
  - Malaise [Recovered/Resolved]
  - Heart rate increased [Recovered/Resolved]
  - Ventricular extrasystoles [Recovered/Resolved]
